FAERS Safety Report 6908195-2 (Version None)
Quarter: 2010Q3

REPORT INFORMATION
  Report Type: 
  Country: None (occurrence: None)
  Receive Date: 20100803
  Receipt Date: 20100726
  Transmission Date: 20110219
  Serious: Yes (Other)
  Sender: FDA-Public Use
  Company Number: 1000015334

PATIENT
  Age: 14 Year
  Sex: Female

DRUGS (1)
  1. LEXAPRO [Suspect]

REACTIONS (1)
  - LEUKAEMIA RECURRENT [None]
